FAERS Safety Report 4616551-0 (Version None)
Quarter: 2005Q1

REPORT INFORMATION
  Report Type: 
  Country: None (occurrence: None)
  Receive Date: 20050318
  Receipt Date: 20050316
  Transmission Date: 20050727
  Serious: Yes (Hospitalization)
  Sender: FDA-Public Use
  Company Number: A001-412-3709

PATIENT
  Age: 75 Year
  Sex: Female
  Weight: 64.5 kg

DRUGS (7)
  1. DONEPEZIL HCL [Suspect]
     Indication: COGNITIVE DISORDER
     Dosage: 5 MG, 1 IN 1 D, ORAL
     Route: 048
     Dates: start: 20041227, end: 20050207
  2. ASPIRIN [Suspect]
     Dosage: 81 MG, ORAL
     Route: 048
     Dates: start: 19800101, end: 20050110
  3. MULTIVITAMIN (MULTIVITAMIN) [Concomitant]
  4. CALCIUM (CALCIUM) [Concomitant]
  5. LISINOPRIL [Concomitant]
  6. LOVASTATIN [Concomitant]
  7. GEMFIBROZIL [Concomitant]

REACTIONS (4)
  - DUODENAL ULCER HAEMORRHAGE [None]
  - GASTRITIS EROSIVE [None]
  - MALLORY-WEISS SYNDROME [None]
  - MEDICATION ERROR [None]
